FAERS Safety Report 10715652 (Version 1)
Quarter: 2015Q1

REPORT INFORMATION
  Report Type: Spontaneous
  Country: US (occurrence: None)
  Receive Date: 20150106
  Receipt Date: 20150106
  Transmission Date: 20150721
  Serious: Yes (Other)
  Sender: FDA-Public Use
  Company Number: US-H14001-14-01655

PATIENT
  Age: 53 Year
  Sex: Female
  Weight: 104.33 kg

DRUGS (9)
  1. PREDNISONE. [Suspect]
     Active Substance: PREDNISONE
     Indication: CHRONIC OBSTRUCTIVE PULMONARY DISEASE
     Route: 048
     Dates: start: 20131224
  2. PONARIS (FLUCONAZOLE) [Concomitant]
  3. SINGULAIR (MONTELUKAST SODIUM) [Concomitant]
  4. PRO-AIR (PROCATEROL HYDROCHLORIDE) ( INHALANT) [Concomitant]
  5. SYMBICORT (BUDESONIDE W/FORMOTEROL FUMARATE) (FORMOTEROL FUMARATE, BUDESONIDE) [Concomitant]
  6. IPRATROPIUM BROMIDE ALBUTEROL NEBS (COMBIVENT) (IPRATROPIUM BROMIDE, SALBUTAMOL SULFATE) [Concomitant]
  7. OXYGEN. [Concomitant]
     Active Substance: OXYGEN
  8. PRAVASTATIN [Concomitant]
     Active Substance: PRAVASTATIN\PRAVASTATIN SODIUM
  9. LISINOPRIL. [Concomitant]
     Active Substance: LISINOPRIL

REACTIONS (4)
  - Respiratory rate increased [None]
  - Pharyngeal oedema [None]
  - Peripheral swelling [None]
  - Swelling face [None]

NARRATIVE: CASE EVENT DATE: 201312
